FAERS Safety Report 5778869-8 (Version None)
Quarter: 2008Q2

REPORT INFORMATION
  Report Type: 
  Country: None (occurrence: None)
  Receive Date: 20080619
  Receipt Date: 20080610
  Transmission Date: 20081010
  Serious: Yes (Death, Hospitalization)
  Sender: FDA-Public Use
  Company Number: US-JNJFOC-20080601692

PATIENT
  Sex: Male
  Weight: 65.32 kg

DRUGS (3)
  1. RISPERDAL CONSTA [Suspect]
     Indication: DEMENTIA
     Dosage: THE PATIENT TOOK ONE DOSE OF RISPERDAL CONSTA AFTER WHICH PATIENT BECAME INCREASINGLY AGIATATED.
     Route: 030
  2. LIPITON [Concomitant]
     Indication: BLOOD CHOLESTEROL INCREASED
  3. RISPERDAL [Concomitant]
     Indication: DEMENTIA

REACTIONS (5)
  - AGITATION [None]
  - BLOOD GLUCOSE INCREASED [None]
  - CEREBELLAR INFARCTION [None]
  - CEREBROVASCULAR ACCIDENT [None]
  - DEATH [None]
